FAERS Safety Report 6587612-4 (Version None)
Quarter: 2010Q1

REPORT INFORMATION
  Report Type: 
  Country: None (occurrence: None)
  Receive Date: 20100218
  Receipt Date: 20100210
  Transmission Date: 20100710
  Serious: Yes (Hospitalization)
  Sender: FDA-Public Use
  Company Number: US-ELI_LILLY_AND_COMPANY-US200911004014

PATIENT
  Sex: Female
  Weight: 71.94 kg

DRUGS (14)
  1. PEMETREXED [Suspect]
     Indication: NON-SMALL CELL LUNG CANCER
     Dosage: 500 MG/M2, OTHER
     Route: 042
     Dates: start: 20091013
  2. CARBOPLATIN [Suspect]
     Indication: NON-SMALL CELL LUNG CANCER
     Dosage: 6 D/F, OTHER
     Route: 042
     Dates: start: 20091013
  3. BEVACIZUMAB [Suspect]
     Indication: NON-SMALL CELL LUNG CANCER
     Dosage: 15 MG/KG, UNK
     Dates: start: 20091013, end: 20091103
  4. METOPROLOL SUCCINATE [Concomitant]
     Indication: SYNCOPE
     Dosage: 25 MG, DAILY (1/D)
     Route: 065
     Dates: start: 19990101
  5. OMEPRAZOLE [Concomitant]
     Indication: GASTROOESOPHAGEAL REFLUX DISEASE
     Dosage: 40 MG, 2/D
     Route: 048
     Dates: start: 20090801
  6. DONEPEZIL HCL [Concomitant]
     Indication: AMNESIA
     Dosage: 5 MG, DAILY (1/D)
     Route: 048
     Dates: start: 20090801
  7. CLONAZEPAM [Concomitant]
     Indication: TENSION HEADACHE
     Dosage: UNK, EACH EVENING
     Route: 065
     Dates: start: 20090901
  8. MULTI-VITAMIN [Concomitant]
     Dosage: UNK, DAILY (1/D)
     Route: 065
  9. VITAMIN B-12 [Concomitant]
     Dosage: 1000 MG, OTHER
     Route: 065
     Dates: start: 20091005
  10. FOLIC ACID [Concomitant]
     Dosage: 1 MG, DAILY (1/D)
     Route: 048
     Dates: start: 20091006
  11. METOCLOPRAMIDE [Concomitant]
     Dosage: UNK, UNKNOWN
     Route: 065
     Dates: start: 20091106
  12. LIPITOR [Concomitant]
     Dosage: 20 MG, DAILY (1/D)
     Route: 048
  13. MACROBID [Concomitant]
     Dosage: 100 MG, UNKNOWN
     Route: 065
  14. NEXIUM [Concomitant]
     Dosage: UNK, 2/D
     Route: 065

REACTIONS (2)
  - AMAUROSIS FUGAX [None]
  - TRANSIENT ISCHAEMIC ATTACK [None]
